FAERS Safety Report 7575321-4 (Version None)
Quarter: 2011Q2

REPORT INFORMATION
  Report Type: 
  Country: None (occurrence: None)
  Receive Date: 20110627
  Receipt Date: 20110616
  Transmission Date: 20111010
  Serious: Yes (Hospitalization, Disabling, Other)
  Sender: FDA-Public Use
  Company Number: US-US-EMD SERONO, INC.-7064424

PATIENT
  Sex: Female

DRUGS (3)
  1. REBIF [Suspect]
     Indication: MULTIPLE SCLEROSIS
     Route: 058
     Dates: start: 20110416, end: 20110610
  2. ANTIDEPRESSANT [Concomitant]
     Indication: DEPRESSION
  3. AMPYRA [Concomitant]

REACTIONS (8)
  - DISEASE PROGRESSION [None]
  - DRUG INEFFECTIVE [None]
  - PERIPHERAL COLDNESS [None]
  - TREMOR [None]
  - SYPHILIS [None]
  - FALL [None]
  - CEREBROVASCULAR ACCIDENT [None]
  - HEAD INJURY [None]
